FAERS Safety Report 21694526 (Version 1)
Quarter: 2022Q4

REPORT INFORMATION
  Report Type: Report from Study
  Country: KR (occurrence: KR)
  Receive Date: 20221207
  Receipt Date: 20221207
  Transmission Date: 20230112
  Serious: Yes (Other)
  Sender: FDA-Public Use
  Company Number: KR-TAKEDA-2022TUS092821

PATIENT
  Sex: Female
  Weight: 61 kg

DRUGS (17)
  1. VEDOLIZUMAB [Suspect]
     Active Substance: VEDOLIZUMAB
     Indication: Colitis ulcerative
     Dosage: 300 MILLIGRAM
     Route: 065
     Dates: start: 20210510
  2. VEDOLIZUMAB [Suspect]
     Active Substance: VEDOLIZUMAB
     Dosage: 300 MILLIGRAM
     Route: 065
     Dates: start: 20210525
  3. VEDOLIZUMAB [Suspect]
     Active Substance: VEDOLIZUMAB
     Dosage: 300 MILLIGRAM
     Route: 065
     Dates: start: 20210623
  4. VEDOLIZUMAB [Suspect]
     Active Substance: VEDOLIZUMAB
     Dosage: 300 MILLIGRAM
     Route: 065
     Dates: start: 20210818
  5. VEDOLIZUMAB [Suspect]
     Active Substance: VEDOLIZUMAB
     Dosage: 300 MILLIGRAM
     Route: 065
     Dates: start: 20211013
  6. VEDOLIZUMAB [Suspect]
     Active Substance: VEDOLIZUMAB
     Dosage: 300 MILLIGRAM
     Route: 065
     Dates: start: 20211208
  7. VEDOLIZUMAB [Suspect]
     Active Substance: VEDOLIZUMAB
     Dosage: 300 MILLIGRAM
     Route: 065
     Dates: start: 20220203
  8. VEDOLIZUMAB [Suspect]
     Active Substance: VEDOLIZUMAB
     Dosage: 300 MILLIGRAM
     Route: 065
     Dates: start: 20220330
  9. VEDOLIZUMAB [Suspect]
     Active Substance: VEDOLIZUMAB
     Dosage: 300 MILLIGRAM
     Route: 065
     Dates: start: 20220525
  10. RAMNOS [Concomitant]
     Indication: Probiotic therapy
     Dosage: 250 MILLIGRAM, QD
     Route: 048
     Dates: start: 20210623
  11. PREDNISOLONE [Concomitant]
     Active Substance: PREDNISOLONE
     Indication: Colitis ulcerative
     Dosage: 10 MILLIGRAM, QD
     Route: 048
     Dates: start: 20210510, end: 20211024
  12. MESALAMINE [Concomitant]
     Active Substance: MESALAMINE
     Dosage: 1200 MILLIGRAM, BID
     Route: 048
  13. PENTASA [Concomitant]
     Active Substance: MESALAMINE
     Dosage: 1 GRAM, QD
     Route: 054
     Dates: start: 20121013
  14. LOPERAMIDE [Concomitant]
     Active Substance: LOPERAMIDE
     Dosage: 2 MILLIGRAM, QD
     Route: 048
     Dates: start: 20170918, end: 20210524
  15. LOPERAMIDE [Concomitant]
     Active Substance: LOPERAMIDE
     Dosage: 2 MILLIGRAM, QD
     Route: 048
     Dates: start: 20210623, end: 20210817
  16. TIROPRAMIDE [Concomitant]
     Active Substance: TIROPRAMIDE
     Dosage: 100 MILLIGRAM, BID
     Route: 048
     Dates: start: 20150819, end: 20210817
  17. RAMOSETRON HYDROCHLORIDE [Concomitant]
     Active Substance: RAMOSETRON HYDROCHLORIDE
     Dosage: 5 MICROGRAM, QD
     Route: 048
     Dates: start: 20201104, end: 20210524

REACTIONS (1)
  - Rectal haemorrhage [Recovered/Resolved]

NARRATIVE: CASE EVENT DATE: 20220511
